FAERS Safety Report 14226040 (Version 2)
Quarter: 2017Q4

REPORT INFORMATION
  Report Type: Spontaneous
  Country: US (occurrence: US)
  Receive Date: 20171127
  Receipt Date: 20171127
  Transmission Date: 20180321
  Serious: Yes (Death, Hospitalization)
  Sender: FDA-Public Use
  Company Number: US-CELGENEUS-USA-20171106574

PATIENT
  Sex: Male

DRUGS (1)
  1. REVLIMID [Suspect]
     Active Substance: LENALIDOMIDE
     Indication: PLASMA CELL MYELOMA
     Dosage: 25 MILLIGRAM
     Route: 048
     Dates: start: 20150625, end: 20150628

REACTIONS (7)
  - Hiccups [Unknown]
  - Organ failure [Unknown]
  - Malaise [Unknown]
  - Death [Fatal]
  - Heart rate increased [Unknown]
  - Sepsis [Unknown]
  - Pancytopenia [Unknown]

NARRATIVE: CASE EVENT DATE: 2015
